FAERS Safety Report 22365805 (Version 1)
Quarter: 2023Q2

REPORT INFORMATION
  Report Type: Spontaneous
  Country: None (occurrence: US)
  Receive Date: 20230525
  Receipt Date: 20230525
  Transmission Date: 20230722
  Serious: Yes (Life-Threatening, Hospitalization)
  Sender: FDA-Public Use
  Company Number: US-Therakind Limited-2141977

PATIENT
  Age: 48 Year
  Sex: Male

DRUGS (3)
  1. METHOTREXATE [Suspect]
     Active Substance: METHOTREXATE
     Indication: Rheumatoid arthritis
  2. PREDNISONE [Suspect]
     Active Substance: PREDNISONE
  3. TOCILIZUMAB [Suspect]
     Active Substance: TOCILIZUMAB

REACTIONS (5)
  - Disseminated cryptococcosis [Unknown]
  - Meningitis cryptococcal [Recovering/Resolving]
  - Pneumonia [Unknown]
  - Acute respiratory failure [Unknown]
  - Product use in unapproved indication [Unknown]
